FAERS Safety Report 23409027 (Version 3)
Quarter: 2024Q2

REPORT INFORMATION
  Report Type: Spontaneous
  Country: CA (occurrence: CA)
  Receive Date: 20240117
  Receipt Date: 20240502
  Transmission Date: 20240716
  Serious: Yes (Other)
  Sender: FDA-Public Use
  Company Number: CA-AMERICAN REGENT INC-2024000078

PATIENT
  Age: 35 Year
  Sex: Female

DRUGS (2)
  1. VENOFER [Suspect]
     Active Substance: IRON SUCROSE
     Indication: Iron deficiency
     Dosage: UNK, 100MG/5ML
  2. VENOFER [Suspect]
     Active Substance: IRON SUCROSE
     Indication: Anaemia of pregnancy

REACTIONS (5)
  - Maternal exposure during pregnancy [Unknown]
  - Urticaria [Unknown]
  - Hypotension [Unknown]
  - Back pain [Unknown]
  - Pruritus [Unknown]

NARRATIVE: CASE EVENT DATE: 20230905
